FAERS Safety Report 5086967-X (Version None)
Quarter: 2006Q3

REPORT INFORMATION
  Report Type: 
  Country: None (occurrence: None)
  Receive Date: 20060818
  Receipt Date: 20060814
  Transmission Date: 20061208
  Serious: Yes (Other)
  Sender: FDA-Public Use
  Company Number: S06-USA-02724-01

PATIENT
  Age: 50 Year
  Sex: Female

DRUGS (10)
  1. LEXAPRO [Suspect]
     Indication: ANXIETY
     Dosage: 20 MG BID PO
     Route: 048
     Dates: start: 20060201, end: 20060725
  2. LEXAPRO [Suspect]
     Indication: DEPRESSION
     Dosage: 20 MG BID PO
     Route: 048
     Dates: start: 20060201, end: 20060725
  3. LEXAPRO [Suspect]
     Indication: ANXIETY
     Dosage: 20 MG QD PO
     Route: 048
     Dates: start: 20060726, end: 20060801
  4. LEXAPRO [Suspect]
     Indication: DEPRESSION
     Dosage: 20 MG QD PO
     Route: 048
     Dates: start: 20060726, end: 20060801
  5. LEXAPRO [Suspect]
     Indication: ANXIETY
     Dosage: 10 MG QD PO
     Route: 048
     Dates: start: 20060802, end: 20060808
  6. LEXAPRO [Suspect]
     Indication: DEPRESSION
     Dosage: 10 MG QD PO
     Route: 048
     Dates: start: 20060802, end: 20060808
  7. LEXAPRO [Suspect]
     Indication: ANXIETY
     Dosage: 10 MG QOD PO
     Route: 048
     Dates: start: 20060809
  8. LEXAPRO [Suspect]
     Indication: DEPRESSION
     Dosage: 10 MG QOD PO
     Route: 048
     Dates: start: 20060809
  9. GLUCOPHAGE [Concomitant]
  10. INDERAL [Concomitant]

REACTIONS (4)
  - ABNORMAL BEHAVIOUR [None]
  - LOSS OF EMPLOYMENT [None]
  - OBSESSIVE-COMPULSIVE DISORDER [None]
  - TRICHOTILLOMANIA [None]
